FAERS Safety Report 13549462 (Version 1)
Quarter: 2017Q2

REPORT INFORMATION
  Report Type: Report from Study
  Country: None (occurrence: US)
  Receive Date: 20170516
  Receipt Date: 20170516
  Transmission Date: 20170830
  Serious: Yes (Hospitalization, Other)
  Sender: FDA-Public Use
  Company Number: US-ABBVIE-17K-163-1933788-00

PATIENT
  Age: 20 Year
  Sex: Male
  Weight: 100 kg

DRUGS (1)
  1. HUMIRA [Suspect]
     Active Substance: ADALIMUMAB
     Indication: CROHN^S DISEASE
     Route: 058
     Dates: start: 201701, end: 201701

REACTIONS (8)
  - Colitis [Recovering/Resolving]
  - Crohn^s disease [Unknown]
  - Peritonitis [Recovered/Resolved]
  - Abdominal adhesions [Recovered/Resolved]
  - Intestinal perforation [Recovered/Resolved]
  - Ascites [Recovering/Resolving]
  - Gastrointestinal perforation [Recovered/Resolved]
  - Stool analysis abnormal [Recovered/Resolved]

NARRATIVE: CASE EVENT DATE: 2017
